FAERS Safety Report 8674066 (Version 3)
Quarter: 2012Q4

REPORT INFORMATION
  Report Type: Report from Study
  Country: US (occurrence: US)
  Receive Date: 20120719
  Receipt Date: 20120924
  Transmission Date: 20130627
  Serious: Yes (Hospitalization, Other)
  Sender: FDA-Public Use
  Company Number: US-ABBOTT-12P-163-0954902-00

PATIENT

DRUGS (6)
  1. HUMIRA 40 MG/0.8 ML PEN [Suspect]
     Indication: RHEUMATOID ARTHRITIS
     Dates: start: 2008
  2. HUMIRA 40 MG/0.8 ML PEN [Suspect]
     Route: 058
     Dates: start: 20110616, end: 201206
  3. MELOXICAM [Concomitant]
     Indication: RHEUMATOID ARTHRITIS
  4. FOLIC ACID [Concomitant]
     Indication: VITAMIN SUPPLEMENTATION
  5. CALCIUM [Concomitant]
     Indication: OSTEOPOROSIS
  6. VITAMIN D [Concomitant]
     Indication: OSTEOPOROSIS

REACTIONS (4)
  - Nodule [Recovered/Resolved]
  - Foot deformity [Unknown]
  - Gait disturbance [Recovering/Resolving]
  - Oedema peripheral [Not Recovered/Not Resolved]
